FAERS Safety Report 7291270-3 (Version None)
Quarter: 2011Q1

REPORT INFORMATION
  Report Type: 
  Country: None (occurrence: None)
  Receive Date: 20110214
  Receipt Date: 20110120
  Transmission Date: 20110831
  Serious: No
  Sender: FDA-Public Use
  Company Number: US-B.I. PHARMACEUTICALS,INC./RIDGEFIELD-2011-BP-02092BP

PATIENT
  Sex: Female

DRUGS (3)
  1. SPIRIVA [Suspect]
     Indication: ASTHMA
     Dosage: 18 MCG
     Route: 055
     Dates: start: 20101001
  2. SPIRONOLACTONE [Suspect]
     Indication: ACNE
  3. ADVAIR DISKUS 100/50 [Suspect]
     Indication: ASTHMA

REACTIONS (4)
  - SLEEP DISORDER [None]
  - HORMONE LEVEL ABNORMAL [None]
  - VOCAL CORD CYST [None]
  - DYSPHONIA [None]
